FAERS Safety Report 14803936 (Version 1)
Quarter: 2018Q2

REPORT INFORMATION
  Report Type: Spontaneous
  Country: US (occurrence: US)
  Receive Date: 20180425
  Receipt Date: 20180425
  Transmission Date: 20180711
  Serious: Yes (Hospitalization, Other)
  Sender: FDA-Public Use
  Company Number: US-TORRENT-00006103

PATIENT
  Age: 15 Year
  Sex: Female

DRUGS (3)
  1. BUPROPION. [Suspect]
     Active Substance: BUPROPION
     Indication: PRODUCT USED FOR UNKNOWN INDICATION
     Dosage: INTENTIONAL OVERDOSE OF 6.6 GRAMS OF BUPROPION (22  TABLETS  OF  300  MG)
  2. ESCITALOPRAM [Concomitant]
     Active Substance: ESCITALOPRAM OXALATE
     Indication: DEPRESSION
     Dosage: UNKNOWN
  3. MARIJUANA [Concomitant]
     Active Substance: CANNABIS SATIVA SUBSP. INDICA TOP
     Indication: PRODUCT USED FOR UNKNOWN INDICATION
     Dosage: UNKNOWN

REACTIONS (17)
  - Chest discomfort [Unknown]
  - Tachycardia [Unknown]
  - Dizziness [Unknown]
  - Electrocardiogram QT prolonged [Recovered/Resolved]
  - Sinus tachycardia [Unknown]
  - Prescription drug used without a prescription [Unknown]
  - Confusional state [Unknown]
  - Myoclonus [Recovered/Resolved]
  - Generalised tonic-clonic seizure [Unknown]
  - Toxicity to various agents [Unknown]
  - Intentional overdose [Unknown]
  - Headache [Unknown]
  - Unresponsive to stimuli [Unknown]
  - Muscle twitching [Unknown]
  - Abdominal pain [Unknown]
  - Bundle branch block left [Unknown]
  - Hypotension [Unknown]
